FAERS Safety Report 4715342-X (Version None)
Quarter: 2005Q3

REPORT INFORMATION
  Report Type: 
  Country: None (occurrence: None)
  Receive Date: 20050715
  Receipt Date: 20050614
  Transmission Date: 20060218
  Serious: Yes (Other)
  Sender: FDA-Public Use
  Company Number: DE-MERCK-0506DEU00120

PATIENT
  Age: 17 Year
  Sex: Male
  Weight: 30 kg

DRUGS (3)
  1. SINGULAIR [Suspect]
     Indication: ASTHMA
     Route: 048
     Dates: start: 20050604, end: 20050609
  2. VIGABATRIN [Concomitant]
     Indication: EPILEPSY
     Route: 065
  3. PHENOBARBITAL [Concomitant]
     Route: 065

REACTIONS (1)
  - EPILEPSY [None]
